FAERS Safety Report 4897025-9 (Version None)
Quarter: 2005Q4

REPORT INFORMATION
  Report Type: 
  Country: None (occurrence: None)
  Receive Date: 20051228
  Receipt Date: 20041101
  Transmission Date: 20060501
  Serious: Yes (Hospitalization, Other)
  Sender: FDA-Public Use
  Company Number: USA041182744

PATIENT
  Age: 35 Year
  Sex: Female
  Weight: 81 kg

DRUGS (5)
  1. HUMALOG [Suspect]
     Dosage: 30 U DAY
     Dates: start: 20041201
  2. ZYRTEC [Concomitant]
  3. OXYCONTIN [Concomitant]
  4. DEMEROL [Concomitant]
  5. HUMULIN R [Suspect]
     Dates: start: 19730119, end: 19941201

REACTIONS (11)
  - ANAPHYLACTIC REACTION [None]
  - BLOOD GLUCOSE DECREASED [None]
  - DRUG HYPERSENSITIVITY [None]
  - EATING DISORDER [None]
  - IMPAIRED HEALING [None]
  - INFUSION SITE ERYTHEMA [None]
  - INFUSION SITE PAIN [None]
  - LATEX ALLERGY [None]
  - LOSS OF CONSCIOUSNESS [None]
  - MIGRAINE [None]
  - PRURITUS [None]
